FAERS Safety Report 10830788 (Version 1)
Quarter: 2015Q1

REPORT INFORMATION
  Report Type: Report from Study
  Country: US (occurrence: US)
  Receive Date: 20150219
  Receipt Date: 20150219
  Transmission Date: 20150721
  Serious: No
  Sender: FDA-Public Use
  Company Number: US-ABBVIE-14P-163-1193827-00

PATIENT
  Age: 71 Year
  Sex: Female

DRUGS (1)
  1. HUMIRA [Suspect]
     Active Substance: ADALIMUMAB
     Indication: CROHN^S DISEASE
     Route: 058
     Dates: start: 201311

REACTIONS (5)
  - Injection site pruritus [Unknown]
  - Injection site erythema [Unknown]
  - Weight increased [Unknown]
  - Gingival bleeding [Unknown]
  - Injection site bruising [Unknown]

NARRATIVE: CASE EVENT DATE: 201311
